FAERS Safety Report 5879333-8 (Version None)
Quarter: 2008Q3

REPORT INFORMATION
  Report Type: 
  Country: None (occurrence: None)
  Receive Date: 20080912
  Receipt Date: 20080904
  Transmission Date: 20090109
  Serious: Yes (Hospitalization)
  Sender: FDA-Public Use
  Company Number: US-BAYER-200812782BCC

PATIENT
  Age: 57 Year
  Sex: Male
  Weight: 95 kg

DRUGS (11)
  1. ASPIRIN [Suspect]
     Indication: CEREBROVASCULAR ACCIDENT PROPHYLAXIS
     Dosage: AS USED: 81 MG  UNIT DOSE: 81 MG
     Route: 048
     Dates: start: 20030101, end: 20030101
  2. ALEVE [Suspect]
     Indication: ARTHRITIS
     Dates: end: 20030101
  3. PLAVIX [Suspect]
     Indication: CEREBROVASCULAR ACCIDENT PROPHYLAXIS
     Route: 048
     Dates: start: 20030101, end: 20030101
  4. ZOCOR [Concomitant]
     Indication: BLOOD CHOLESTEROL INCREASED
     Route: 048
  5. CRESTOR [Concomitant]
  6. GLUCOPHAGE [Concomitant]
  7. GLIPIZIDE [Concomitant]
     Route: 048
  8. ALLOPURINOL [Concomitant]
  9. TRAMADOL HCL [Concomitant]
  10. GABAPENTIN [Concomitant]
  11. CAPOTEN [Concomitant]

REACTIONS (2)
  - HAEMORRHAGE [None]
  - ULCER HAEMORRHAGE [None]
